FAERS Safety Report 23124039 (Version 4)
Quarter: 2023Q4

REPORT INFORMATION
  Report Type: Spontaneous
  Country: GR (occurrence: GR)
  Receive Date: 20231030
  Receipt Date: 20231227
  Transmission Date: 20240109
  Serious: No
  Sender: FDA-Public Use
  Company Number: GR-PFIZER INC-PV202300165431

PATIENT
  Age: 5 Year
  Sex: Male
  Weight: 14 kg

DRUGS (2)
  1. GENOTROPIN [Suspect]
     Active Substance: SOMATROPIN
     Indication: Body height decreased
     Dosage: 0.5 MG / 6 DAYS, 1 DAY OFF PER WEEK
     Route: 058
     Dates: start: 20221228
  2. GENOTROPIN [Suspect]
     Active Substance: SOMATROPIN
     Dosage: 0.5 MG / 6 DAYS, 1 DAY OFF PER WEEK
     Route: 058
     Dates: start: 20221228

REACTIONS (2)
  - Drug dose omission by device [Unknown]
  - Device use error [Unknown]

NARRATIVE: CASE EVENT DATE: 20231002
